FAERS Safety Report 11746931 (Version 1)
Quarter: 2015Q4

REPORT INFORMATION
  Report Type: Spontaneous
  Country: US (occurrence: US)
  Receive Date: 20151117
  Receipt Date: 20151117
  Transmission Date: 20160304
  Serious: No
  Sender: FDA-Public Use
  Company Number: US-DSJP-DSU-2015-129225

PATIENT
  Age: 72 Year
  Sex: Female
  Weight: 124 kg

DRUGS (3)
  1. WELCHOL [Suspect]
     Active Substance: COLESEVELAM HYDROCHLORIDE
     Indication: BLOOD CHOLESTEROL INCREASED
     Dosage: 3.75 G, QD
     Route: 048
     Dates: start: 20150818, end: 20150818
  2. UNK BLOOD PRESSURE [Concomitant]
     Indication: HYPERTENSION
     Dosage: 2.5 MG, QD
     Route: 048
  3. METOPROLOL [Concomitant]
     Active Substance: METOPROLOL
     Indication: HEART RATE IRREGULAR
     Dosage: 5 MG, QD
     Route: 048

REACTIONS (2)
  - Cough [Recovered/Resolved]
  - Oesophageal obstruction [Recovered/Resolved]

NARRATIVE: CASE EVENT DATE: 20150818
